FAERS Safety Report 16154286 (Version 1)
Quarter: 2019Q2

REPORT INFORMATION
  Report Type: Spontaneous
  Country: CN (occurrence: CN)
  Receive Date: 20190403
  Receipt Date: 20190403
  Transmission Date: 20190711
  Serious: Yes (Death, Other)
  Sender: FDA-Public Use
  Company Number: CN-MACLEODS PHARMACEUTICALS US LTD-MAC2019020705

PATIENT

DRUGS (2)
  1. OSELTAMIVIR [Suspect]
     Active Substance: OSELTAMIVIR
     Indication: AVIAN INFLUENZA
     Dosage: 150 MILLIGRAM, BID
     Route: 065
  2. PERAMIVIR [Suspect]
     Active Substance: PERAMIVIR
     Indication: AVIAN INFLUENZA
     Dosage: 300 MILLIGRAM, BID
     Route: 064

REACTIONS (3)
  - Hypoxia [Fatal]
  - Foetal exposure during pregnancy [Fatal]
  - Foetal death [Fatal]
